FAERS Safety Report 7759077-8 (Version None)
Quarter: 2011Q3

REPORT INFORMATION
  Report Type: 
  Country: None (occurrence: None)
  Receive Date: 20110919
  Receipt Date: 20110907
  Transmission Date: 20111222
  Serious: Yes (Other)
  Sender: FDA-Public Use
  Company Number: PHEH2010US02799

PATIENT
  Sex: Female
  Weight: 96 kg

DRUGS (13)
  1. CARISOPRODOL [Concomitant]
  2. ANASTROZOLE [Concomitant]
  3. AREDIA [Suspect]
     Indication: BREAST CANCER METASTATIC
  4. PULMICORT [Concomitant]
  5. FLUDROCORTISONE ACETATE [Concomitant]
  6. FERROUS SULFATE TAB [Concomitant]
  7. DURAGESIC-100 [Concomitant]
  8. REMERON [Concomitant]
  9. PROTONIX [Concomitant]
  10. CARDIZEM [Concomitant]
  11. ACTOS [Concomitant]
  12. LIPITOR [Concomitant]
  13. ASPIRIN [Concomitant]

REACTIONS (27)
  - OSTEONECROSIS OF JAW [None]
  - DEFORMITY [None]
  - BACK PAIN [None]
  - ANGIOMYOLIPOMA [None]
  - HYDRONEPHROSIS [None]
  - ASTHMA [None]
  - CARDIAC DISORDER [None]
  - EMPHYSEMA [None]
  - INJURY [None]
  - DENTAL CARIES [None]
  - HYPOTENSION [None]
  - PECTUS EXCAVATUM [None]
  - INTERVERTEBRAL DISC DEGENERATION [None]
  - PAIN [None]
  - INFECTION [None]
  - SINUSITIS [None]
  - DIVERTICULUM [None]
  - METASTASES TO BONE [None]
  - HEADACHE [None]
  - CHRONIC OBSTRUCTIVE PULMONARY DISEASE [None]
  - OSTEOMYELITIS [None]
  - ARTERIOSCLEROSIS [None]
  - DIABETES MELLITUS [None]
  - MUSCULOSKELETAL CHEST PAIN [None]
  - MYOCARDIAL INFARCTION [None]
  - MIGRAINE [None]
  - ABDOMINAL PAIN [None]
